FAERS Safety Report 4687725-8 (Version None)
Quarter: 2005Q2

REPORT INFORMATION
  Report Type: 
  Country: None (occurrence: None)
  Receive Date: 20050608
  Receipt Date: 20050608
  Transmission Date: 20051028
  Serious: No
  Sender: FDA-Public Use
  Company Number: None

PATIENT
  Sex: Female
  Weight: 140.1615 kg

DRUGS (1)
  1. DESMOPRESSIN 0.01% [Suspect]
     Indication: DIABETES INSIPIDUS
     Dosage: 2 SPRAYS TID
     Dates: start: 20040501, end: 20040701

REACTIONS (2)
  - DRUG INEFFECTIVE [None]
  - POLLAKIURIA [None]
